FAERS Safety Report 25558703 (Version 1)
Quarter: 2025Q3

REPORT INFORMATION
  Report Type: Spontaneous
  Country: US (occurrence: US)
  Receive Date: 20250715
  Receipt Date: 20250715
  Transmission Date: 20251020
  Serious: No
  Sender: INTRABIO
  Company Number: US-IBO-202500120

PATIENT
  Age: 11 Year
  Sex: Male
  Weight: 29 kg

DRUGS (1)
  1. AQNEURSA [Suspect]
     Active Substance: LEVACETYLLEUCINE
     Indication: GM2 gangliosidosis
     Route: 065

REACTIONS (1)
  - Off label use [Unknown]
